FAERS Safety Report 17754761 (Version 1)
Quarter: 2020Q2

REPORT INFORMATION
  Report Type: Spontaneous
  Country: US (occurrence: US)
  Receive Date: 20200507
  Receipt Date: 20200507
  Transmission Date: 20200714
  Serious: No
  Sender: FDA-Public Use
  Company Number: NVSC2020US121625

PATIENT
  Sex: Male

DRUGS (2)
  1. MEKINIST [Suspect]
     Active Substance: TRAMETINIB DIMETHYL SULFOXIDE
     Indication: THYROID CANCER
     Dosage: 1 MG, QD
     Route: 048
     Dates: start: 20200402
  2. TAFINLAR [Suspect]
     Active Substance: DABRAFENIB MESYLATE
     Indication: THYROID CANCER
     Dosage: 100 MG, Q12H
     Route: 048
     Dates: start: 20200402

REACTIONS (5)
  - Dizziness [Unknown]
  - Fatigue [Unknown]
  - Hypotension [Unknown]
  - Joint swelling [Unknown]
  - Peripheral swelling [Unknown]
